FAERS Safety Report 15124253 (Version 2)
Quarter: 2018Q4

REPORT INFORMATION
  Report Type: Report from Study
  Country: US (occurrence: US)
  Receive Date: 20180710
  Receipt Date: 20181205
  Transmission Date: 20190204
  Serious: Yes (Life-Threatening)
  Sender: FDA-Public Use
  Company Number: US-ROCHE-2148021

PATIENT
  Age: 55 Year
  Sex: Female
  Weight: 69.4 kg

DRUGS (3)
  1. PERTUZUMAB. [Suspect]
     Active Substance: PERTUZUMAB
     Indication: HER-2 POSITIVE BREAST CANCER
     Dosage: LOADING DOSE, FOLLOWED EVERY 3 WEEKS THEREAFTER BY A PREDETERMINED DOSE IN THE PROTOCOL VIA IV
     Route: 042
     Dates: start: 20180316, end: 20180608
  2. ATEZOLIZUMAB. [Suspect]
     Active Substance: ATEZOLIZUMAB
     Indication: HER-2 POSITIVE BREAST CANCER
     Route: 042
     Dates: start: 20180316, end: 20180608
  3. TRASTUZUMAB. [Suspect]
     Active Substance: TRASTUZUMAB
     Indication: HER-2 POSITIVE BREAST CANCER
     Dosage: PREDETERMINED DOSE PER PROTOCOL VIA IV, WEEKLY FOR 24 WEEKS AND AFTER EVERY 3 WEEKS
     Route: 042
     Dates: start: 20180316, end: 20180608

REACTIONS (1)
  - Brain oedema [Recovered/Resolved]

NARRATIVE: CASE EVENT DATE: 20180627
